FAERS Safety Report 6094452-1 (Version None)
Quarter: 2009Q1

REPORT INFORMATION
  Report Type: 
  Country: None (occurrence: None)
  Receive Date: 20090226
  Receipt Date: 20090211
  Transmission Date: 20090719
  Serious: Yes (Other)
  Sender: FDA-Public Use
  Company Number: US-BAYER-200913481GPV

PATIENT
  Sex: Male

DRUGS (3)
  1. ASPIRIN [Suspect]
     Indication: DRUG USE FOR UNKNOWN INDICATION
     Route: 065
  2. RHINOPRONT KOMBI [Suspect]
     Indication: WEIGHT DECREASED
     Route: 048
  3. COFFEINUM N [Suspect]
     Indication: DRUG USE FOR UNKNOWN INDICATION
     Route: 048

REACTIONS (8)
  - BLOOD PRESSURE SYSTOLIC INCREASED [None]
  - EPISTAXIS [None]
  - HEART RATE INCREASED [None]
  - INCREASED APPETITE [None]
  - INSOMNIA [None]
  - INTENTIONAL DRUG MISUSE [None]
  - TREMOR [None]
  - WEIGHT DECREASED [None]
